FAERS Safety Report 6992902-7 (Version None)
Quarter: 2010Q3

REPORT INFORMATION
  Report Type: 
  Country: None (occurrence: None)
  Receive Date: 20100917
  Receipt Date: 20100909
  Transmission Date: 20110219
  Serious: Yes (Hospitalization)
  Sender: FDA-Public Use
  Company Number: GXKR2010US10277

PATIENT
  Age: 28 Year
  Sex: Male

DRUGS (4)
  1. PREDNISONE [Suspect]
     Indication: HYPERTHYROIDISM
     Route: 065
  2. PROPRANOLOL [Concomitant]
     Route: 065
  3. METHIMAZOLE [Concomitant]
     Indication: HYPOTHYROIDISM
     Route: 065
  4. ATENOLOL [Concomitant]

REACTIONS (3)
  - ANXIETY [None]
  - MUSCULAR WEAKNESS [None]
  - THYROTOXIC PERIODIC PARALYSIS [None]
